FAERS Safety Report 11662594 (Version 1)
Quarter: 2015Q4

REPORT INFORMATION
  Report Type: Spontaneous
  Country: CH (occurrence: JP)
  Receive Date: 20151027
  Receipt Date: 20151027
  Transmission Date: 20160304
  Serious: Yes (Other)
  Sender: FDA-Public Use
  Company Number: JP-ORION CORPORATION ORION PHARMA-ENT 2015-1013

PATIENT
  Sex: Female

DRUGS (4)
  1. COMTAN [Suspect]
     Active Substance: ENTACAPONE
     Route: 048
     Dates: start: 201508
  2. MADOPAR DR [Concomitant]
     Route: 065
  3. RIVOTRIL [Concomitant]
     Active Substance: CLONAZEPAM
     Indication: INSOMNIA
     Route: 065
  4. MADOPAR [Concomitant]
     Active Substance: BENSERAZIDE HYDROCHLORIDE\LEVODOPA
     Route: 065

REACTIONS (5)
  - Disorientation [Unknown]
  - Wrong technique in product usage process [Unknown]
  - Dyskinesia [Unknown]
  - Eating disorder [Unknown]
  - Akinesia [Unknown]
